FAERS Safety Report 25682716 (Version 1)
Quarter: 2025Q3

REPORT INFORMATION
  Report Type: Spontaneous
  Country: US (occurrence: None)
  Receive Date: 20250814
  Receipt Date: 20250814
  Transmission Date: 20251021
  Serious: Yes (Other)
  Sender: FDA-CTU
  Company Number: None

PATIENT
  Age: 33 Year
  Sex: Female
  Weight: 91.8 kg

DRUGS (1)
  1. CIPRO [Suspect]
     Active Substance: CIPROFLOXACIN HYDROCHLORIDE
     Indication: Urinary tract infection
     Dates: start: 20250808, end: 20250810

REACTIONS (4)
  - Painful respiration [None]
  - Neck pain [None]
  - Migraine [None]
  - Pain in extremity [None]

NARRATIVE: CASE EVENT DATE: 20250809
